FAERS Safety Report 5912299-0 (Version None)
Quarter: 2008Q4

REPORT INFORMATION
  Report Type: 
  Country: None (occurrence: None)
  Receive Date: 20081008
  Receipt Date: 20080926
  Transmission Date: 20090506
  Serious: Yes (Hospitalization)
  Sender: FDA-Public Use
  Company Number: FR-ROCHE-588558

PATIENT
  Sex: Male
  Weight: 59 kg

DRUGS (2)
  1. CAPECITABINE [Suspect]
     Dosage: AS PER SYNOPSIS: CAPECITABINE = 1600 MG/M?/J (5 DAYS/7)
     Route: 048
     Dates: start: 20080602
  2. OXALIPLATIN [Suspect]
     Dosage: AS PER SYNOPSIS: OXALIPLATINE = 50 MG/M? WEEKLY.
     Route: 065
     Dates: start: 20080602

REACTIONS (1)
  - ANASTOMOTIC COMPLICATION [None]
